FAERS Safety Report 4716494-8 (Version None)
Quarter: 2005Q3

REPORT INFORMATION
  Report Type: 
  Country: None (occurrence: None)
  Receive Date: 20050714
  Receipt Date: 20050701
  Transmission Date: 20060218
  Serious: Yes (Hospitalization)
  Sender: FDA-Public Use
  Company Number: 215088

PATIENT
  Age: 43 Year
  Sex: Female

DRUGS (10)
  1. RITUXAN [Suspect]
     Indication: NON-HODGKIN'S LYMPHOMA
     Dosage: 500 MG,  IV DRIP
     Route: 042
     Dates: start: 20011015, end: 20011015
  2. CYCLOPHOSPHAMIDE [Concomitant]
  3. VINCRISTINE [Concomitant]
  4. DOXORUBICIN HYDROCHLORIDE [Concomitant]
  5. PREDNISONE [Concomitant]
  6. FAMOTIDINE [Concomitant]
  7. MUCOSTA 9REBAMIPIDE) [Concomitant]
  8. ALLOPURINOL [Concomitant]
  9. POLARAMINE [Concomitant]
  10. IBUPROFEN [Concomitant]

REACTIONS (2)
  - ALANINE AMINOTRANSFERASE INCREASED [None]
  - ASPARTATE AMINOTRANSFERASE INCREASED [None]
